FAERS Safety Report 5361525-8 (Version None)
Quarter: 2007Q2

REPORT INFORMATION
  Report Type: 
  Country: None (occurrence: None)
  Receive Date: 20070619
  Receipt Date: 20070611
  Transmission Date: 20071010
  Serious: Yes (Other)
  Sender: FDA-Public Use
  Company Number: PHBS2007MY09807

PATIENT
  Age: 10 Year
  Sex: Female
  Weight: 24 kg

DRUGS (1)
  1. RITALIN [Suspect]
     Indication: ATTENTION DEFICIT/HYPERACTIVITY DISORDER
     Dosage: 15 MG/DAY
     Route: 048
     Dates: start: 20040323

REACTIONS (1)
  - BLOOD ALKALINE PHOSPHATASE INCREASED [None]
